FAERS Safety Report 9155307 (Version 1)
Quarter: 2013Q1

REPORT INFORMATION
  Report Type: Report from Study
  Country: FR (occurrence: FR)
  Receive Date: 20130311
  Receipt Date: 20130311
  Transmission Date: 20140127
  Serious: Yes (Death, Hospitalization)
  Sender: FDA-Public Use
  Company Number: FR-ROCHE-1188460

PATIENT
  Age: 72 Year
  Sex: Male
  Weight: 84 kg

DRUGS (7)
  1. BEVACIZUMAB [Suspect]
     Indication: COLORECTAL CANCER METASTATIC
     Route: 041
     Dates: start: 20130118, end: 20130118
  2. FOLINIC ACID [Suspect]
     Indication: COLORECTAL CANCER METASTATIC
     Route: 041
     Dates: start: 20130118, end: 20130118
  3. FLUOROURACIL [Suspect]
     Indication: COLORECTAL CANCER METASTATIC
     Route: 040
     Dates: start: 20130118, end: 20130118
  4. FLUOROURACIL [Suspect]
     Route: 041
     Dates: start: 20130118, end: 20130118
  5. IRINOTECAN [Suspect]
     Indication: COLORECTAL CANCER METASTATIC
     Route: 041
     Dates: start: 20130118, end: 20130118
  6. HEMI-DAONIL [Concomitant]
     Indication: DIABETES MELLITUS
     Route: 065
  7. LESCOL [Concomitant]
     Indication: HYPERCHOLESTEROLAEMIA
     Route: 065

REACTIONS (4)
  - Pulmonary embolism [Fatal]
  - Abdominal pain [Fatal]
  - Vomiting [Fatal]
  - Small intestinal obstruction [Recovered/Resolved]
